FAERS Safety Report 7807110-7 (Version None)
Quarter: 2011Q4

REPORT INFORMATION
  Report Type: 
  Country: None (occurrence: None)
  Receive Date: 20111011
  Receipt Date: 20111005
  Transmission Date: 20120403
  Serious: No
  Sender: FDA-Public Use
  Company Number: US-PFIZER INC-2011238062

PATIENT
  Sex: Female
  Weight: 81.633 kg

DRUGS (3)
  1. XANAX [Suspect]
     Indication: GENERALISED ANXIETY DISORDER
     Dosage: 0.5 MG, 2X/DAY, AS NEEDED
     Route: 048
     Dates: start: 20110801
  2. ALPRAZOLAM [Suspect]
     Indication: GENERALISED ANXIETY DISORDER
     Dosage: 0.5 MG, 2X/DAY, AS NEEDED
     Route: 048
     Dates: start: 20110807, end: 20110801
  3. LISINOPRIL [Suspect]
     Indication: HYPERTENSION
     Dosage: 10 MG, DAILY
     Route: 048

REACTIONS (6)
  - HEART RATE DECREASED [None]
  - ABNORMAL DREAMS [None]
  - SOMNOLENCE [None]
  - CONFUSIONAL STATE [None]
  - FATIGUE [None]
  - SLUGGISHNESS [None]
